FAERS Safety Report 6147905-1 (Version None)
Quarter: 2009Q2

REPORT INFORMATION
  Report Type: 
  Country: None (occurrence: None)
  Receive Date: 20090402
  Receipt Date: 20081209
  Transmission Date: 20091009
  Serious: No
  Sender: FDA-Public Use
  Company Number: 1000004591

PATIENT
  Age: 52 Year
  Sex: Female

DRUGS (3)
  1. BYSTOLIC [Suspect]
     Indication: BLOOD PRESSURE INCREASED
     Dosage: 5 MG (5 MG, 1 IN 1 D), ORAL
     Route: 048
     Dates: start: 20080624, end: 20081015
  2. MULTI-VITAMIN [Concomitant]
  3. CALCIUM CITRATE W/VITAMIN D NOS (CALCIUM CITRATE, VITAMIN D NOS) [Concomitant]

REACTIONS (21)
  - ASTHENIA [None]
  - BLOOD PRESSURE INCREASED [None]
  - CHEST PAIN [None]
  - CONFUSIONAL STATE [None]
  - DIARRHOEA [None]
  - DIZZINESS [None]
  - FATIGUE [None]
  - HEADACHE [None]
  - HYPERHIDROSIS [None]
  - HYPOGLYCAEMIA [None]
  - INSOMNIA [None]
  - JOINT DISLOCATION [None]
  - LIP BLISTER [None]
  - MYALGIA [None]
  - NAUSEA [None]
  - PAIN [None]
  - PALPITATIONS [None]
  - PSORIASIS [None]
  - SWELLING [None]
  - VISUAL IMPAIRMENT [None]
  - WEIGHT INCREASED [None]
